FAERS Safety Report 6665750-5 (Version None)
Quarter: 2010Q2

REPORT INFORMATION
  Report Type: 
  Country: None (occurrence: None)
  Receive Date: 20100401
  Receipt Date: 20100302
  Transmission Date: 20101027
  Serious: No
  Sender: FDA-Public Use
  Company Number: DL2010-0189

PATIENT
  Age: 27 Year
  Sex: Female

DRUGS (5)
  1. MIFEPRISTONE (MIFEPREX) [Suspect]
     Indication: ABORTION INDUCED
     Dosage: 200 MG, ORAL
     Route: 048
     Dates: start: 20090914
  2. MISOPROSTOL [Suspect]
     Dosage: 800 IMCG, BUCCAL 9/15/09 OR 09/16/09
     Route: 002
     Dates: start: 20090915
  3. MISOPROSTOL [Suspect]
     Dosage: 800 IMCG, BUCCAL 9/15/09 OR 09/16/09
     Route: 002
     Dates: start: 20090916
  4. MISOPROSTOL [Suspect]
     Dosage: 800 IMCG, BUCCAL 9/15/09 OR 09/16/09
     Route: 002
     Dates: start: 20090923
  5. DOXYCYCLINE [Concomitant]

REACTIONS (3)
  - ABDOMINAL PAIN [None]
  - HAEMORRHAGE [None]
  - PREGNANCY [None]
